FAERS Safety Report 22252244 (Version 1)
Quarter: 2023Q2

REPORT INFORMATION
  Report Type: Spontaneous
  Country: US (occurrence: US)
  Receive Date: 20230426
  Receipt Date: 20230426
  Transmission Date: 20230722
  Serious: Yes (Hospitalization, Other)
  Sender: FDA-Public Use
  Company Number: US-AMGEN-USASP2023069500

PATIENT
  Age: 56 Year
  Sex: Female

DRUGS (9)
  1. APREMILAST [Suspect]
     Active Substance: APREMILAST
     Indication: Erythema multiforme
     Dosage: 30 MILLIGRAM, BID
     Route: 065
  2. APREMILAST [Suspect]
     Active Substance: APREMILAST
     Indication: Product used for unknown indication
  3. TAFASITAMAB [Concomitant]
     Active Substance: TAFASITAMAB
     Dosage: UNK
  4. LENALIDOMIDE [Concomitant]
     Active Substance: LENALIDOMIDE
     Dosage: UNK
  5. PREDNISONE [Concomitant]
     Active Substance: PREDNISONE
     Dosage: 1 MILLIGRAM
  6. PREDNISONE [Concomitant]
     Active Substance: PREDNISONE
     Dosage: 15 MILLIGRAM, QD
  7. UPADACITINIB [Concomitant]
     Active Substance: UPADACITINIB
     Dosage: UNK
  8. TACROLIMUS [Concomitant]
     Active Substance: TACROLIMUS
  9. Immunoglobulin [Concomitant]
     Dosage: UNK

REACTIONS (4)
  - Pneumonia [Unknown]
  - Erythema multiforme [Unknown]
  - Drug ineffective for unapproved indication [Unknown]
  - Off label use [Unknown]
